FAERS Safety Report 4265686-3 (Version None)
Quarter: 2004Q1

REPORT INFORMATION
  Report Type: 
  Country: None (occurrence: None)
  Receive Date: 20040107
  Receipt Date: 20040105
  Transmission Date: 20041129
  Serious: Yes (Hospitalization)
  Sender: FDA-Public Use
  Company Number: FR-GLAXOSMITHKLINE-B0318957A

PATIENT
  Age: 42 Year
  Sex: Female

DRUGS (8)
  1. COMBIVIR [Suspect]
     Indication: HIV INFECTION
     Route: 048
     Dates: start: 20020715
  2. CORTANCYL [Suspect]
     Route: 048
  3. LEDERFOLINE [Suspect]
     Route: 048
  4. MALOCIDE [Suspect]
     Route: 048
     Dates: start: 20031031
  5. OMEPRAZOLE [Suspect]
     Route: 048
  6. VIREAD [Suspect]
     Indication: HIV INFECTION
     Route: 048
     Dates: start: 20030315
  7. ATARAX [Concomitant]
     Route: 065
  8. CALTRATE [Concomitant]
     Route: 048

REACTIONS (2)
  - ARTHRALGIA [None]
  - OSTEOPOROSIS [None]
